FAERS Safety Report 24826089 (Version 2)
Quarter: 2025Q1

REPORT INFORMATION
  Report Type: Spontaneous
  Country: US (occurrence: US)
  Receive Date: 20250109
  Receipt Date: 20250114
  Transmission Date: 20250408
  Serious: Yes (Other)
  Sender: PFIZER
  Company Number: US-PFIZER INC-PV202400170417

PATIENT
  Age: 65 Year
  Sex: Female

DRUGS (3)
  1. TALZENNA [Suspect]
     Active Substance: TALAZOPARIB TOSYLATE
     Indication: Ovarian cancer
     Dosage: 1 MG, DAILY (1 MG CAPSULE BY MOUTH DAILY)
     Route: 048
  2. TALZENNA [Suspect]
     Active Substance: TALAZOPARIB TOSYLATE
     Indication: Breast cancer
  3. TALZENNA [Suspect]
     Active Substance: TALAZOPARIB TOSYLATE
     Indication: Retroperitoneal cancer

REACTIONS (5)
  - Colitis [Unknown]
  - Neoplasm progression [Not Recovered/Not Resolved]
  - Inflammation [Unknown]
  - Pain [Not Recovered/Not Resolved]
  - Off label use [Unknown]
